FAERS Safety Report 4837792-3 (Version None)
Quarter: 2005Q4

REPORT INFORMATION
  Report Type: 
  Country: None (occurrence: None)
  Receive Date: 20051128
  Receipt Date: 20051117
  Transmission Date: 20060501
  Serious: Yes (Hospitalization, Disabling)
  Sender: FDA-Public Use
  Company Number: US-MERCK-0511USA03282

PATIENT
  Age: 54 Year
  Sex: Female
  Weight: 91 kg

DRUGS (4)
  1. VIOXX [Suspect]
     Indication: ARTHRITIS
     Route: 048
     Dates: start: 20000101, end: 20020101
  2. GLUCOVANCE [Concomitant]
     Route: 065
  3. PLETAL [Concomitant]
     Route: 065
  4. LOTREL [Concomitant]
     Route: 065

REACTIONS (3)
  - CARDIOVASCULAR INSUFFICIENCY [None]
  - CEREBROVASCULAR ACCIDENT [None]
  - HAEMORRHAGE [None]
